FAERS Safety Report 21994538 (Version 2)
Quarter: 2023Q2

REPORT INFORMATION
  Report Type: Spontaneous
  Country: US (occurrence: US)
  Receive Date: 20230215
  Receipt Date: 20230414
  Transmission Date: 20230721
  Serious: No
  Sender: FDA-Public Use
  Company Number: US-ALXN-A202301836

PATIENT
  Sex: Female

DRUGS (1)
  1. SOLIRIS [Suspect]
     Active Substance: ECULIZUMAB
     Indication: Myasthenia gravis
     Dosage: 1200 MG, Q2W
     Route: 042
     Dates: start: 202004

REACTIONS (3)
  - Malaise [Unknown]
  - Fatigue [Unknown]
  - Dyspnoea [Unknown]
